FAERS Safety Report 19044451 (Version 1)
Quarter: 2021Q1

REPORT INFORMATION
  Report Type: Spontaneous
  Country: AT (occurrence: AT)
  Receive Date: 20210323
  Receipt Date: 20210323
  Transmission Date: 20210420
  Serious: Yes (Other)
  Sender: FDA-Public Use
  Company Number: AT-MYLANLABS-2021M1016995

PATIENT
  Age: 65 Year
  Sex: Female

DRUGS (1)
  1. AZACITIDINE. [Suspect]
     Active Substance: AZACITIDINE
     Indication: ACUTE MYELOID LEUKAEMIA
     Dosage: UNK

REACTIONS (9)
  - SARS-CoV-1 test positive [Unknown]
  - Inflammation [Unknown]
  - General physical health deterioration [Unknown]
  - Acute kidney injury [Unknown]
  - Hypertriglyceridaemia [Unknown]
  - Respiratory failure [Unknown]
  - Serum ferritin increased [Unknown]
  - Thrombocytopenia [Unknown]
  - Weight decreased [Unknown]
